FAERS Safety Report 11128070 (Version 3)
Quarter: 2015Q3

REPORT INFORMATION
  Report Type: Spontaneous
  Country: BR (occurrence: BR)
  Receive Date: 20150521
  Receipt Date: 20150724
  Transmission Date: 20151125
  Serious: Yes (Hospitalization, Other)
  Sender: FDA-Public Use
  Company Number: BR-PFIZER INC-2015166398

PATIENT
  Age: 75 Year
  Sex: Female
  Weight: 86 kg

DRUGS (4)
  1. CALCIUM [Concomitant]
     Active Substance: CALCIUM
     Indication: BONE DISORDER
     Dosage: UNK, 1X/DAY
     Dates: start: 2005
  2. PRESSAT [Concomitant]
     Active Substance: AMLODIPINE BESYLATE
     Dosage: UNK
     Dates: start: 2010
  3. MICARDIS [Concomitant]
     Active Substance: TELMISARTAN
     Indication: BLOOD PRESSURE MEASUREMENT
     Dosage: UNK, 1X/DAY
     Dates: start: 2010
  4. LIPITOR [Suspect]
     Active Substance: ATORVASTATIN CALCIUM
     Indication: BLOOD CHOLESTEROL INCREASED
     Dosage: 20 MG, DAILY
     Route: 048
     Dates: start: 20100921

REACTIONS (3)
  - Small intestine carcinoma [Recovering/Resolving]
  - Osteoarthritis [Recovering/Resolving]
  - Fibromyalgia [Recovering/Resolving]

NARRATIVE: CASE EVENT DATE: 2011
